FAERS Safety Report 14957724 (Version 2)
Quarter: 2018Q2

REPORT INFORMATION
  Report Type: Spontaneous
  Country: EG (occurrence: EG)
  Receive Date: 20180531
  Receipt Date: 20180613
  Transmission Date: 20180711
  Serious: Yes (Hospitalization, Other)
  Sender: FDA-Public Use
  Company Number: EG-NOVOPROD-602276

PATIENT
  Age: 67 Year
  Sex: Female
  Weight: 130 kg

DRUGS (10)
  1. ALPHA D [Concomitant]
     Dosage: 1 TAB  AFTER LUNCH
     Route: 048
     Dates: start: 201703
  2. CALCIUM [Concomitant]
     Active Substance: CALCIUM
     Dosage: 1TAB AFTER BREAKFAST 1AFTER
     Route: 048
     Dates: start: 201703
  3. ANGELIQ [Concomitant]
     Active Substance: DROSPIRENONE\ESTRADIOL
     Dosage: ONCE DAILY
     Route: 048
  4. TRITON                             /00031902/ [Concomitant]
     Indication: GASTROOESOPHAGEAL REFLUX DISEASE
     Dosage: 2 TAB, QD BEFORE BREAKFAST AND LUNCH
     Route: 048
     Dates: start: 201703
  5. MODAZAR [Concomitant]
     Indication: HYPERTENSION
     Dosage: 1 TAB, QD BEFOR BREAK FAST
     Dates: start: 201703
  6. PROTOFIX [Concomitant]
     Indication: GASTROOESOPHAGEAL REFLUX DISEASE
     Dosage: 1 TAB, QD BEFORE BREAKFAST
     Route: 048
     Dates: start: 201703
  7. NOVONORM [Suspect]
     Active Substance: REPAGLINIDE
     Indication: DIABETES MELLITUS
     Dosage: 1 TAB, QD (ONCE DAILY BEFORE BREAKFAST)
     Route: 048
     Dates: start: 20150408
  8. VICTOZA [Suspect]
     Active Substance: LIRAGLUTIDE
     Indication: DIABETES MELLITUS
     Dosage: 1.2 IU
     Route: 058
     Dates: start: 20150408
  9. PRIMPERAN [Concomitant]
     Active Substance: METOCLOPRAMIDE HYDROCHLORIDE
     Indication: GASTROOESOPHAGEAL REFLUX DISEASE
     Dosage: 2 TAB, QD BEFORE BREAKFAST AND LUNCH
     Route: 048
  10. OMEGA 3                            /01333901/ [Concomitant]
     Active Substance: FISH OIL\TOCOPHEROL
     Dosage: 2 TAB, QD AFTER BREAK FAST + LUNCH
     Route: 048

REACTIONS (1)
  - Breast cancer [Recovered/Resolved with Sequelae]

NARRATIVE: CASE EVENT DATE: 20161116
